FAERS Safety Report 12255984 (Version 1)
Quarter: 2016Q2

REPORT INFORMATION
  Report Type: Spontaneous
  Country: US (occurrence: None)
  Receive Date: 20160411
  Receipt Date: 20160411
  Transmission Date: 20160815
  Serious: Yes (Life-Threatening)
  Sender: FDA-Public Use
  Company Number: None

PATIENT
  Age: 87 Year
  Sex: Male
  Weight: 80.5 kg

DRUGS (1)
  1. DOFETILIDE. [Suspect]
     Active Substance: DOFETILIDE
     Route: 048
     Dates: start: 20121202, end: 20121203

REACTIONS (3)
  - Ventricular fibrillation [None]
  - Blood magnesium decreased [None]
  - Torsade de pointes [None]

NARRATIVE: CASE EVENT DATE: 20121202
